FAERS Safety Report 5420362-6 (Version None)
Quarter: 2007Q3

REPORT INFORMATION
  Report Type: 
  Country: None (occurrence: None)
  Receive Date: 20070816
  Receipt Date: 20070808
  Transmission Date: 20080115
  Serious: Yes (Death)
  Sender: FDA-Public Use
  Company Number: TKT01200700400

PATIENT
  Age: 6 Year
  Sex: Male

DRUGS (1)
  1. IDURSULFASE (IDURSULFASE) (0.5 MILLIGRAM (S) /KILOGRAM, CONCENTRATE FO [Suspect]
     Indication: MUCOPOLYSACCHARIDOSIS II
     Dosage: 18 MG, 1 IN 1 WK), INTRAVENOUS DRIP
     Route: 041
     Dates: start: 20061113, end: 20070808

REACTIONS (3)
  - CHOKING [None]
  - CYANOSIS [None]
  - FOREIGN BODY ASPIRATION [None]
